FAERS Safety Report 9594142 (Version 1)
Quarter: 2013Q3

REPORT INFORMATION
  Report Type: Spontaneous
  Country: US (occurrence: None)
  Receive Date: 20130930
  Receipt Date: 20130930
  Transmission Date: 20140515
  Serious: No
  Sender: FDA-Public Use
  Company Number: 1000048182

PATIENT
  Age: 20 Year
  Sex: Female

DRUGS (5)
  1. LINZESS [Suspect]
     Indication: CONSTIPATION
     Dosage: 290 MCG (290 MCG, 1 IN 1 D), ORAL
     Route: 048
     Dates: start: 20130823, end: 20130823
  2. AMITRIPTYLINE (AMITRIPTYLINE) (AMITRIPTYLINE)? [Concomitant]
  3. ALLEGRA (FEXOFENADINE HYDROCHORIDE) (FEXOFENADINE HYDROCHLORIDE) [Concomitant]
  4. MVI (VITAMINS NOS) (VITAMINS NOS) [Concomitant]
  5. VITAMIN C (VITAMINS NOS) (VITAMINS NOS) [Concomitant]

REACTIONS (2)
  - Rash [None]
  - Pharyngeal oedema [None]
